FAERS Safety Report 8254960-1 (Version None)
Quarter: 2012Q2

REPORT INFORMATION
  Report Type: 
  Country: None (occurrence: None)
  Receive Date: 20120403
  Receipt Date: 20120328
  Transmission Date: 20120825
  Serious: No
  Sender: FDA-Public Use
  Company Number: US-PFIZER INC-2012080676

PATIENT
  Sex: Female

DRUGS (4)
  1. PRILOSEC [Suspect]
     Dosage: UNK, IN THE MORNING
  2. SIMVASTATIN [Suspect]
     Dosage: 10 MG, UNK
  3. FLECTOR [Suspect]
     Indication: INFLAMMATION
     Dosage: UNK
  4. PLAVIX [Suspect]
     Dosage: 10 MG, UNK

REACTIONS (5)
  - FAECES DISCOLOURED [None]
  - DIZZINESS [None]
  - URINE OUTPUT DECREASED [None]
  - DYSURIA [None]
  - WRONG TECHNIQUE IN DRUG USAGE PROCESS [None]
